FAERS Safety Report 15719328 (Version 1)
Quarter: 2018Q4

REPORT INFORMATION
  Report Type: Spontaneous
  Country: US (occurrence: US)
  Receive Date: 20181213
  Receipt Date: 20181213
  Transmission Date: 20190205
  Serious: Yes (Other)
  Sender: FDA-Public Use
  Company Number: US-JNJFOC-20181206239

PATIENT
  Age: 29 Year
  Sex: Female
  Weight: 90.72 kg

DRUGS (7)
  1. SYNTHROID [Concomitant]
     Active Substance: LEVOTHYROXINE SODIUM
     Indication: HYPOTHYROIDISM
     Route: 048
  2. PROTONIX [Concomitant]
     Active Substance: PANTOPRAZOLE SODIUM
     Route: 048
  3. TOPAMAX [Suspect]
     Active Substance: TOPIRAMATE
     Indication: REDUCTION OF INCREASED INTRACRANIAL PRESSURE
     Route: 048
     Dates: start: 201809, end: 201809
  4. TOPAMAX [Suspect]
     Active Substance: TOPIRAMATE
     Indication: REDUCTION OF INCREASED INTRACRANIAL PRESSURE
     Dosage: 50 MG TWICE A DAY
     Route: 048
     Dates: start: 2018
  5. COUMADIN [Concomitant]
     Active Substance: WARFARIN SODIUM
     Route: 048
  6. TOPAMAX [Suspect]
     Active Substance: TOPIRAMATE
     Indication: REDUCTION OF INCREASED INTRACRANIAL PRESSURE
     Route: 048
     Dates: start: 201809, end: 2018
  7. TOPAMAX [Suspect]
     Active Substance: TOPIRAMATE
     Indication: REDUCTION OF INCREASED INTRACRANIAL PRESSURE
     Dosage: 25 MG IN AM AND 50 MG IN PM
     Route: 048
     Dates: start: 2018, end: 2018

REACTIONS (6)
  - Product use in unapproved indication [Unknown]
  - Vomiting [Not Recovered/Not Resolved]
  - Nausea [Not Recovered/Not Resolved]
  - Off label use [Unknown]
  - Neuropathy peripheral [Not Recovered/Not Resolved]
  - Speech disorder [Not Recovered/Not Resolved]

NARRATIVE: CASE EVENT DATE: 201809
